FAERS Safety Report 8908596 (Version 1)
Quarter: 2012Q4

REPORT INFORMATION
  Report Type: 
  Country: US (occurrence: US)
  Receive Date: 20121114
  Receipt Date: 20121114
  Transmission Date: 20130627
  Serious: Yes (Death, Hospitalization, Other)
  Sender: FDA-Public Use
  Company Number: PHEH2012US022428

PATIENT
  Sex: Female
  Weight: 43.99 kg

DRUGS (1)
  1. GILENYA [Suspect]
     Indication: MULTIPLE SCLEROSIS
     Dosage: 0.5 mg, QD
     Route: 048
     Dates: start: 2011

REACTIONS (10)
  - Death [Fatal]
  - Septic shock [Unknown]
  - Decubitus ulcer [Unknown]
  - Influenza [Unknown]
  - Weight decreased [Unknown]
  - Multiple sclerosis [Unknown]
  - Abasia [Unknown]
  - Incontinence [Unknown]
  - Decreased appetite [Unknown]
  - Aphagia [Unknown]
